FAERS Safety Report 17970808 (Version 1)
Quarter: 2020Q3

REPORT INFORMATION
  Report Type: Spontaneous
  Country: IT (occurrence: IT)
  Receive Date: 20200701
  Receipt Date: 20200701
  Transmission Date: 20201103
  Serious: Yes (Other)
  Sender: FDA-Public Use
  Company Number: PHHY2018IT043104

PATIENT
  Age: 41 Year
  Sex: Female

DRUGS (3)
  1. MEPRAL [Suspect]
     Active Substance: OMEPRAZOLE SODIUM
     Indication: ABDOMINAL PAIN UPPER
     Dosage: 1 DF, UNK (1 UG/LITRE)
     Route: 042
     Dates: start: 20180410, end: 20180410
  2. TORA?DOL [Suspect]
     Active Substance: KETOROLAC TROMETHAMINE
     Indication: CHEST PAIN
     Dosage: 1 DF, UNK (1 UG/LITRE)
     Route: 030
     Dates: start: 20180410, end: 20180410
  3. PARACETAMOL [Suspect]
     Active Substance: ACETAMINOPHEN
     Indication: ABDOMINAL PAIN UPPER
     Dosage: 1 DF, UNK (1 UG/LITRE)
     Route: 048

REACTIONS (6)
  - Dyspnoea [Recovering/Resolving]
  - Pyrexia [Recovering/Resolving]
  - Oral discomfort [Recovering/Resolving]
  - Suffocation feeling [Recovering/Resolving]
  - Erythema [Recovering/Resolving]
  - Pruritus [Recovering/Resolving]

NARRATIVE: CASE EVENT DATE: 20180410
